FAERS Safety Report 24761012 (Version 2)
Quarter: 2025Q1

REPORT INFORMATION
  Report Type: Spontaneous
  Country: CA (occurrence: CA)
  Receive Date: 20241220
  Receipt Date: 20250330
  Transmission Date: 20250409
  Serious: Yes (Hospitalization, Other)
  Sender: CSL BEHRING
  Company Number: CA-BEH-2024187536

PATIENT
  Age: 39 Year
  Sex: Female
  Weight: 61 kg

DRUGS (6)
  1. HUMAN C1-ESTERASE INHIBITOR [Suspect]
     Active Substance: HUMAN C1-ESTERASE INHIBITOR
     Indication: Hereditary angioedema with C1 esterase inhibitor deficiency
     Route: 058
  2. HUMAN C1-ESTERASE INHIBITOR [Suspect]
     Active Substance: HUMAN C1-ESTERASE INHIBITOR
     Indication: Prophylaxis
     Route: 065
  3. HUMAN C1-ESTERASE INHIBITOR [Suspect]
     Active Substance: HUMAN C1-ESTERASE INHIBITOR
     Indication: Preoperative care
     Dosage: 1500.0 IU, TIW
     Route: 042
  4. HUMAN C1-ESTERASE INHIBITOR [Suspect]
     Active Substance: HUMAN C1-ESTERASE INHIBITOR
     Indication: Tattoo
     Dosage: 1500.0 IU, TIW
     Route: 058
     Dates: start: 2019
  5. ICATIBANT ACETATE [Suspect]
     Active Substance: ICATIBANT ACETATE
     Indication: Hereditary angioedema with normal C1 esterase inhibitor
     Route: 065
     Dates: start: 2019
  6. ICATIBANT ACETATE [Suspect]
     Active Substance: ICATIBANT ACETATE
     Route: 065

REACTIONS (18)
  - Hereditary angioedema [Unknown]
  - Drug ineffective for unapproved indication [Unknown]
  - Hypertensive urgency [Unknown]
  - Laryngeal oedema [Unknown]
  - Periorbital oedema [Unknown]
  - Swollen tongue [Unknown]
  - Abdominal pain [Unknown]
  - Dyspnoea [Unknown]
  - Urticaria [Unknown]
  - Vomiting [Unknown]
  - Nausea [Unknown]
  - Acute stress disorder [Unknown]
  - Fear of injection [Unknown]
  - Headache [Unknown]
  - Major depression [Unknown]
  - Post-traumatic stress disorder [Unknown]
  - Off label use [Unknown]
  - Off label use [Unknown]

NARRATIVE: CASE EVENT DATE: 20210821
